FAERS Safety Report 14726389 (Version 3)
Quarter: 2019Q2

REPORT INFORMATION
  Report Type: Report from Study
  Country: CA (occurrence: CA)
  Receive Date: 20180406
  Receipt Date: 20190527
  Transmission Date: 20190711
  Serious: Yes (Other)
  Sender: FDA-Public Use
  Company Number: CA-ROCHE-2098145

PATIENT
  Sex: Male

DRUGS (11)
  1. ESBRIET [Suspect]
     Active Substance: PIRFENIDONE
     Indication: IDIOPATHIC PULMONARY FIBROSIS
     Route: 048
     Dates: start: 20170912
  2. ACLIDINIUM BROMIDE. [Concomitant]
     Active Substance: ACLIDINIUM BROMIDE
  3. METOPROLOL. [Concomitant]
     Active Substance: METOPROLOL
  4. ADVAIR HFA [Concomitant]
     Active Substance: FLUTICASONE PROPIONATE\SALMETEROL XINAFOATE
  5. ESBRIET [Suspect]
     Active Substance: PIRFENIDONE
     Route: 048
     Dates: start: 2017, end: 201802
  6. DIAMICRON [Concomitant]
     Active Substance: GLICLAZIDE
  7. METFORMIN [Concomitant]
     Active Substance: METFORMIN HYDROCHLORIDE
  8. ROSUVASTATIN. [Concomitant]
     Active Substance: ROSUVASTATIN
  9. ESOMEPRAZOLE. [Concomitant]
     Active Substance: ESOMEPRAZOLE MAGNESIUM
  10. ACETYLSALICYLIC ACID [Concomitant]
     Active Substance: ASPIRIN
  11. RAMIPRIL. [Concomitant]
     Active Substance: RAMIPRIL

REACTIONS (9)
  - Decreased appetite [Unknown]
  - Taste disorder [Recovering/Resolving]
  - Abdominal distension [Recovering/Resolving]
  - Medication error [Unknown]
  - Parosmia [Recovering/Resolving]
  - Pneumonia [Recovering/Resolving]
  - Decreased appetite [Recovering/Resolving]
  - Drug ineffective [Unknown]
  - Flatulence [Recovering/Resolving]
